FAERS Safety Report 17240353 (Version 1)
Quarter: 2020Q1

REPORT INFORMATION
  Report Type: Spontaneous
  Country: IT (occurrence: IT)
  Receive Date: 20200107
  Receipt Date: 20200107
  Transmission Date: 20200409
  Serious: Yes (Other)
  Sender: FDA-Public Use
  Company Number: IT-ACCORD-168892

PATIENT
  Age: 22 Year
  Sex: Female

DRUGS (6)
  1. FENTANEST [Suspect]
     Active Substance: FENTANYL CITRATE
     Indication: INDUCTION OF ANAESTHESIA
     Route: 042
     Dates: start: 20191213, end: 20191213
  2. ONDANSETRON ACCORD [Suspect]
     Active Substance: ONDANSETRON
     Indication: PRODUCT USED FOR UNKNOWN INDICATION
     Route: 042
     Dates: start: 20191213, end: 20191213
  3. PROPOFOL KABI [Suspect]
     Active Substance: PROPOFOL
     Indication: INDUCTION OF ANAESTHESIA
     Route: 042
     Dates: start: 20191213, end: 20191213
  4. CEFAZOLIN TEVA [Suspect]
     Active Substance: CEFAZOLIN
     Indication: ANTIBIOTIC PROPHYLAXIS
     Route: 042
     Dates: start: 20191213, end: 20191213
  5. MIDAZOLAM ACCORD INJVLST 1MG/ML AMPUL 5ML [Suspect]
     Active Substance: MIDAZOLAM HYDROCHLORIDE
     Indication: INDUCTION OF ANAESTHESIA
     Route: 042
     Dates: start: 20191213, end: 20191213
  6. DEXAMETHASONE PHOSPHATE PFIZER [Suspect]
     Active Substance: DEXAMETHASONE PHOSPHATE
     Indication: PRODUCT USED FOR UNKNOWN INDICATION
     Route: 042
     Dates: start: 20191213, end: 20191213

REACTIONS (3)
  - Airway peak pressure increased [Recovered/Resolved]
  - Hypotension [Recovered/Resolved]
  - Chest expansion decreased [Recovered/Resolved]

NARRATIVE: CASE EVENT DATE: 20191213
